FAERS Safety Report 5609249-3 (Version None)
Quarter: 2008Q1

REPORT INFORMATION
  Report Type: 
  Country: None (occurrence: None)
  Receive Date: 20080129
  Receipt Date: 20080129
  Transmission Date: 20080703
  Serious: Yes (Other)
  Sender: FDA-Public Use
  Company Number: None

PATIENT
  Age: 51 Year
  Sex: Female
  Weight: 88.4514 kg

DRUGS (1)
  1. VYTORIN [Suspect]
     Indication: BLOOD CHOLESTEROL INCREASED

REACTIONS (7)
  - EYE MOVEMENT DISORDER [None]
  - FACIAL PAIN [None]
  - FATIGUE [None]
  - JOINT STIFFNESS [None]
  - MALAISE [None]
  - MUSCLE SPASMS [None]
  - MYALGIA [None]
